FAERS Safety Report 19959204 (Version 1)
Quarter: 2021Q4

REPORT INFORMATION
  Report Type: Spontaneous
  Country: US (occurrence: US)
  Receive Date: 20211012
  Receipt Date: 20211012
  Transmission Date: 20220303
  Serious: No
  Sender: FDA-Public Use
  Company Number: None

PATIENT
  Age: 32 Year
  Sex: Female

DRUGS (1)
  1. GLEEVEC [Suspect]
     Active Substance: IMATINIB MESYLATE
     Indication: Myeloid leukaemia
     Dosage: ?          OTHER DOSE:1 TAB;
     Route: 048
     Dates: start: 202010, end: 202107

REACTIONS (6)
  - Nausea [None]
  - Vomiting [None]
  - Decreased appetite [None]
  - Chromaturia [None]
  - Hepatic enzyme increased [None]
  - Immune system disorder [None]

NARRATIVE: CASE EVENT DATE: 20210601
